FAERS Safety Report 7686056-1 (Version None)
Quarter: 2011Q3

REPORT INFORMATION
  Report Type: 
  Country: None (occurrence: None)
  Receive Date: 20110816
  Receipt Date: 20110811
  Transmission Date: 20111222
  Serious: No
  Sender: FDA-Public Use
  Company Number: US-PFIZER INC-2011185237

PATIENT
  Sex: Male

DRUGS (2)
  1. ADVIL LIQUI-GELS [Suspect]
     Indication: HEADACHE
     Dosage: 400 MG, WEEKLY
     Route: 048
     Dates: start: 20110601
  2. ADVIL LIQUI-GELS [Suspect]
     Indication: MYALGIA

REACTIONS (1)
  - GASTROOESOPHAGEAL REFLUX DISEASE [None]
